FAERS Safety Report 5628665-7 (Version None)
Quarter: 2008Q1

REPORT INFORMATION
  Report Type: 
  Country: None (occurrence: None)
  Receive Date: 20080214
  Receipt Date: 20080214
  Transmission Date: 20080703
  Serious: Yes (Hospitalization)
  Sender: FDA-Public Use
  Company Number: None

PATIENT
  Age: 76 Year
  Sex: Female
  Weight: 70.7 kg

DRUGS (2)
  1. TOPOTECAN 4.0MG/M2 [Suspect]
     Indication: OVARIAN CANCER
     Dosage: 6.96MG WEEKLY IV
     Route: 042
     Dates: start: 20071219
  2. BEVACIZUMAB 10MG/KG [Suspect]
     Indication: OVARIAN CANCER
     Dosage: 710MG WKLY 2/4 PER CYL IV
     Route: 042
     Dates: start: 20071219

REACTIONS (4)
  - ABDOMINAL PAIN [None]
  - DIARRHOEA [None]
  - NAUSEA [None]
  - VOMITING [None]
